FAERS Safety Report 10026773 (Version 1)
Quarter: 2014Q1

REPORT INFORMATION
  Report Type: Spontaneous
  Country: US (occurrence: US)
  Receive Date: 20140321
  Receipt Date: 20140321
  Transmission Date: 20141002
  Serious: Yes (Life-Threatening, Hospitalization)
  Sender: FDA-Public Use
  Company Number: US-DRREDDYS-USA/USA/14/0039052

PATIENT
  Age: 44 Year
  Sex: Male

DRUGS (2)
  1. GEMCITABINE [Suspect]
     Indication: PANCREATIC CARCINOMA METASTATIC
     Dosage: 1000 MILLIGRAM/SQUARE METER ON DAYS 1, 8, AND 15 OF EACH 4-WEEK CYCLE
     Route: 065
  2. CISPLATIN [Suspect]
     Indication: PANCREATIC CARCINOMA METASTATIC
     Dosage: 50 MILLIGRAM/SQUARE METER  ON DAYS 1 AND 15 OF EACH 4-WEEK CYCLE
     Route: 065

REACTIONS (1)
  - Aortic dissection [Unknown]
